FAERS Safety Report 24001833 (Version 1)
Quarter: 2024Q2

REPORT INFORMATION
  Report Type: Report from Study
  Country: JP (occurrence: JP)
  Receive Date: 20240622
  Receipt Date: 20240622
  Transmission Date: 20240716
  Serious: Yes (Other)
  Sender: FDA-Public Use
  Company Number: JP-JNJFOC-20240654941

PATIENT

DRUGS (1)
  1. DARATUMUMAB [Suspect]
     Active Substance: DARATUMUMAB
     Indication: Plasma cell myeloma
     Dosage: DOSE UNKNOWN
     Route: 058

REACTIONS (11)
  - Plasma cell myeloma [Unknown]
  - Plasma cell myeloma refractory [Unknown]
  - Myelosuppression [Unknown]
  - Myelodysplastic syndrome [Unknown]
  - Tumour lysis syndrome [Unknown]
  - Drug intolerance [Unknown]
  - Infusion related reaction [Unknown]
  - Infection [Unknown]
  - Fatigue [Unknown]
  - Malaise [Unknown]
  - Adverse reaction [Unknown]
